FAERS Safety Report 8662581 (Version 3)
Quarter: 2012Q4

REPORT INFORMATION
  Report Type: 
  Country: US (occurrence: US)
  Receive Date: 20120712
  Receipt Date: 20120921
  Transmission Date: 20130627
  Serious: No
  Sender: FDA-Public Use
  Company Number: US-PFIZER INC-2012161952

PATIENT
  Sex: Female

DRUGS (1)
  1. REVATIO [Suspect]
     Dosage: UNK

REACTIONS (6)
  - Epistaxis [Unknown]
  - Diarrhoea [Unknown]
  - Dry mouth [Unknown]
  - Lip swelling [Unknown]
  - Buccal mucosal roughening [Unknown]
  - Dry skin [Unknown]
